FAERS Safety Report 6667695-3 (Version None)
Quarter: 2010Q1

REPORT INFORMATION
  Report Type: 
  Country: None (occurrence: None)
  Receive Date: 20100331
  Receipt Date: 20100315
  Transmission Date: 20100710
  Serious: Yes (Hospitalization)
  Sender: FDA-Public Use
  Company Number: 6058788

PATIENT
  Age: 71 Year
  Sex: Female

DRUGS (10)
  1. EUTHYRAL (TABLET) (LEVOTHYROXINE SODIUM, LIOTHYRONIN SODIUM, [Suspect]
     Indication: DRUG USE FOR UNKNOWN INDICATION
     Dosage: 1 DOSAGE FORMS, IN THE MORNING)
  2. PREDNISOLONE [Suspect]
     Indication: DRUG USE FOR UNKNOWN INDICATION
     Dosage: 20 MG (20 MG, 1 IN 1 D), ORAL
     Route: 048
     Dates: start: 20091101, end: 20091108
  3. SEGLOR (5 MG, CAPSULE) (DIHYDROERGOTAMINE MESILATE) [Suspect]
     Indication: DRUG USE FOR UNKNOWN INDICATION
     Dosage: 2 DOSAGE FORMS (1 DOSAGE FORMS, IN THE MORNING, IN THE EVENING), ORAL
     Route: 048
  4. LYRICA [Suspect]
     Indication: DRUG USE FOR UNKNOWN INDICATION
     Dosage: 2 DOSAGE FORMS 92 DOSAGE FORMS, 1 IN 1 D), ORAL
     Route: 048
     Dates: start: 20091101, end: 20091118
  5. FUNGIZONE [Suspect]
     Indication: DRUG USE FOR UNKNOWN INDICATION
     Dosage: 3 SOUP SPOONS (1, 3 IN 1 D), ORAL
     Route: 048
     Dates: start: 20091101, end: 20091108
  6. STABLON (12.5 MG, COATED TABLET) (TIANEPTINE) [Suspect]
     Indication: DRUG USE FOR UNKNOWN INDICATION
     Dosage: 3 DOSAGE FORMS (1 DOSAGE FORMS, 3 IN 1 D), ORAL
     Route: 048
     Dates: end: 20091108
  7. SINEMET [Suspect]
     Indication: DRUG USE FOR UNKNOWN INDICATION
     Dosage: 1 DOSAGE FORMS (0.5 DOSAGE FORMS, 2 IN 1 D)
  8. STRESAM (50 MG) (ETIFOXINE) [Suspect]
     Indication: DRUG USE FOR UNKNOWN INDICATION
     Dosage: 5 DOSAGE FORMS (1, 1,1, 2 DF), ORAL
     Route: 048
     Dates: end: 20091108
  9. PIRACETAM (20 PERCENT) (PIRACETAM) [Suspect]
     Indication: DRUG USE FOR UNKNOWN INDICATION
     Dosage: 3 DOSAGE FORMS (1 DOSAGE FORMS, 3 IN 1 D)
  10. VITAMIN E (500 MG, CAPSULE) (TOCOPHEROL) [Concomitant]
     Indication: DRUG USE FOR UNKNOWN INDICATION

REACTIONS (3)
  - DYSARTHRIA [None]
  - DYSPHAGIA [None]
  - TONGUE NECROSIS [None]
